FAERS Safety Report 5985961-1 (Version None)
Quarter: 2008Q4

REPORT INFORMATION
  Report Type: 
  Country: None (occurrence: None)
  Receive Date: 20081205
  Receipt Date: 20081205
  Transmission Date: 20090506
  Serious: Yes (Other)
  Sender: FDA-Public Use
  Company Number: None

PATIENT
  Sex: Female

DRUGS (3)
  1. INDOMETHACIN [Suspect]
     Indication: HIP ARTHROPLASTY
     Dosage: 25 MG, TID
     Dates: start: 20080912
  2. ACETYLSALICYLIC ACID [Concomitant]
  3. CENTRUM [Concomitant]

REACTIONS (6)
  - HIP SWELLING [None]
  - JOINT SWELLING [None]
  - LOSS OF CONSCIOUSNESS [None]
  - OEDEMA PERIPHERAL [None]
  - SWELLING [None]
  - SYNCOPE [None]
